FAERS Safety Report 9330603 (Version 2)
Quarter: 2013Q2

REPORT INFORMATION
  Report Type: Report from Study
  Country: CA (occurrence: CA)
  Receive Date: 20130605
  Receipt Date: 20130607
  Transmission Date: 20140414
  Serious: Yes (Death, Other)
  Sender: FDA-Public Use
  Company Number: PHHY2013CA056527

PATIENT
  Age: 85 Year
  Sex: Female

DRUGS (3)
  1. ACLASTA [Suspect]
     Indication: OSTEOPOROSIS
     Dosage: 5 MG, 1 PER YEAR
     Route: 042
     Dates: start: 20100913
  2. ACLASTA [Suspect]
     Dosage: 5 MG, 1 PER YEAR
     Route: 042
     Dates: start: 20110915
  3. ACLASTA [Suspect]
     Dosage: 5 MG, 1 PER YEAR
     Route: 042
     Dates: start: 20120830

REACTIONS (3)
  - Death [Fatal]
  - Chronic obstructive pulmonary disease [Unknown]
  - Infective exacerbation of bronchiectasis [Unknown]
